FAERS Safety Report 4645439-4 (Version None)
Quarter: 2005Q2

REPORT INFORMATION
  Report Type: 
  Country: None (occurrence: None)
  Receive Date: 20050426
  Receipt Date: 20050418
  Transmission Date: 20051028
  Serious: Yes (Hospitalization)
  Sender: FDA-Public Use
  Company Number: GB-MERCK-0504GBR00102

PATIENT
  Age: 41 Year

DRUGS (9)
  1. ZETIA [Suspect]
     Indication: HYPERCHOLESTEROLAEMIA
     Route: 048
     Dates: start: 20050101, end: 20050407
  2. ATORVASTATIN CALCIUM [Suspect]
     Indication: HYPERCHOLESTEROLAEMIA
     Route: 048
     Dates: start: 20050101, end: 20050407
  3. ASPIRIN [Concomitant]
     Route: 048
  4. RAMIPRIL [Concomitant]
     Route: 048
  5. ISOSORBIDE MONONITRATE [Concomitant]
     Route: 048
  6. PROPYLTHIOURACIL [Concomitant]
     Route: 048
  7. NICORANDIL [Concomitant]
     Route: 048
  8. BISOPROLOL [Concomitant]
     Route: 048
  9. CLOPIDOGREL BISULFATE [Concomitant]
     Route: 048

REACTIONS (4)
  - HEPATITIS [None]
  - HEPATITIS ACUTE [None]
  - LIVER FUNCTION TEST ABNORMAL [None]
  - PROTHROMBIN TIME PROLONGED [None]
